FAERS Safety Report 24067755 (Version 3)
Quarter: 2024Q4

REPORT INFORMATION
  Report Type: Spontaneous
  Country: JP (occurrence: JP)
  Receive Date: 20240710
  Receipt Date: 20241003
  Transmission Date: 20250115
  Serious: Yes (Other)
  Sender: BRISTOL MYERS SQUIBB
  Company Number: JP-ONO-2024JP014157

PATIENT
  Age: 64 Year
  Sex: Male

DRUGS (3)
  1. OPDIVO [Suspect]
     Active Substance: NIVOLUMAB
     Indication: Non-small cell lung cancer
     Route: 041
     Dates: start: 20240701, end: 20240701
  2. CARBOPLATIN [Concomitant]
     Active Substance: CARBOPLATIN
     Indication: Non-small cell lung cancer
     Dates: start: 20240701
  3. PACLITAXEL [Concomitant]
     Active Substance: PACLITAXEL
     Indication: Non-small cell lung cancer
     Dates: start: 20240701

REACTIONS (4)
  - Hypothalamo-pituitary disorder [Recovering/Resolving]
  - Hepatic function abnormal [Recovering/Resolving]
  - Blood pressure decreased [Recovered/Resolved]
  - Adrenal disorder [Recovering/Resolving]

NARRATIVE: CASE EVENT DATE: 20240703
